FAERS Safety Report 6145362-2 (Version None)
Quarter: 2009Q2

REPORT INFORMATION
  Report Type: 
  Country: None (occurrence: None)
  Receive Date: 20090402
  Receipt Date: 20090323
  Transmission Date: 20091009
  Serious: Yes (Hospitalization)
  Sender: FDA-Public Use
  Company Number: KV200900427

PATIENT
  Age: 59 Year
  Sex: Female

DRUGS (6)
  1. MORPHINE SULFATE [Suspect]
     Indication: PAIN
     Dosage: ORAL
     Route: 048
     Dates: start: 20080101
  2. VICODIN [Concomitant]
  3. PREMARIN [Concomitant]
  4. NAPROXEN [Concomitant]
  5. LIPITOR [Concomitant]
  6. AMLODIPINE [Concomitant]

REACTIONS (3)
  - LOSS OF CONSCIOUSNESS [None]
  - SUICIDE ATTEMPT [None]
  - URINARY INCONTINENCE [None]
